FAERS Safety Report 8801553 (Version 2)
Quarter: 2012Q4

REPORT INFORMATION
  Report Type: 
  Country: GB (occurrence: GB)
  Receive Date: 20120921
  Receipt Date: 20121001
  Transmission Date: 20130627
  Serious: Yes (Other)
  Sender: FDA-Public Use
  Company Number: GB-JNJFOC-20120905068

PATIENT
  Age: 61 Year
  Sex: Female

DRUGS (2)
  1. GOLIMUMAB [Suspect]
     Indication: PSORIATIC ARTHROPATHY
     Route: 058
     Dates: start: 20120511, end: 20120611
  2. GOLIMUMAB [Suspect]
     Indication: PSORIATIC ARTHROPATHY
     Route: 058
     Dates: start: 20120617

REACTIONS (1)
  - Herpes zoster [Recovered/Resolved]
